FAERS Safety Report 8246261-2 (Version None)
Quarter: 2012Q1

REPORT INFORMATION
  Report Type: 
  Country: None (occurrence: None)
  Receive Date: 20120330
  Receipt Date: 20120323
  Transmission Date: 20120608
  Serious: Yes (Death, Hospitalization)
  Sender: FDA-Public Use
  Company Number: US-CELGENEUS-163-21880-12032707

PATIENT
  Sex: Male

DRUGS (45)
  1. FOLIC ACID [Concomitant]
     Dosage: 400 MICROGRAM
     Route: 048
     Dates: start: 20120126
  2. SOLU-MEDROL [Concomitant]
     Dosage: 80 MILLIGRAM
     Route: 041
  3. FERROUS SULFATE TAB [Concomitant]
     Dosage: 325 MILLIGRAM
     Route: 048
     Dates: start: 20120203
  4. CALCIUM-MAGNESIUM-ZINC [Concomitant]
     Dosage: 1000/400/10
     Route: 048
     Dates: start: 20120125
  5. OXYGEN [Concomitant]
     Dosage: 15 LITERS
     Route: 045
  6. ALBUTEROL SULFATE [Concomitant]
     Dosage: 2.5 MILLIGRAM
     Route: 055
     Dates: start: 20120202
  7. IPRATROPIUM BROMIDE [Concomitant]
     Dosage: 2.5 MILLILITER
     Route: 055
     Dates: start: 20120202
  8. LOVAZA [Concomitant]
     Dosage: 1000 MILLIGRAM
     Route: 048
  9. PANTOPRAZOLE SODIUM [Concomitant]
     Dosage: 40 MILLIGRAM
     Route: 048
     Dates: start: 20120203
  10. NASAL SALINE [Concomitant]
     Dosage: 1 SPRAY
     Route: 045
  11. ASPIRIN [Concomitant]
     Dosage: 81 MILLIGRAM
     Route: 048
     Dates: start: 20120126
  12. IRON [Concomitant]
     Dosage: 1 TABLET
     Route: 048
     Dates: start: 20120126
  13. MEROPENEM [Concomitant]
     Route: 065
  14. REVLIMID [Suspect]
     Indication: NON-HODGKIN'S LYMPHOMA REFRACTORY
     Route: 048
  15. OFATUMUMAB [Suspect]
     Indication: NON-HODGKIN'S LYMPHOMA REFRACTORY
     Route: 065
  16. ASPIRIN [Concomitant]
     Dosage: 81 MILLIGRAM
     Route: 048
     Dates: start: 20120203
  17. COENZYME Q10 [Concomitant]
     Dosage: 50 MILLIGRAM
     Route: 048
     Dates: start: 20120125
  18. FOLIC ACID [Concomitant]
     Dosage: .4 MILLIGRAM
     Route: 048
  19. FUROSEMIDE [Concomitant]
     Dosage: 40 MILLIGRAM
     Route: 041
     Dates: start: 20120203
  20. MUCINEX [Concomitant]
     Dosage: 1200 MILLIGRAM
     Route: 048
     Dates: start: 20120203
  21. HYDROCHLOROTHIAZIDE [Concomitant]
     Dosage: 12.5 MILLIGRAM
     Route: 048
     Dates: start: 20120126
  22. OXYGEN [Concomitant]
     Dosage: 4 LITERS
     Route: 045
  23. CEFEPIME [Concomitant]
     Route: 041
     Dates: start: 20120101
  24. COENZYME Q10 [Concomitant]
     Dosage: 100 MILLIGRAM
     Route: 048
  25. METHYLPREDNISOLONE SODIUM SUCCINATE [Concomitant]
     Dosage: 80 MILLIGRAM
     Route: 041
     Dates: start: 20120202
  26. ANTIBIOTICS [Concomitant]
     Route: 065
  27. ALBUTEROL SULFATE [Concomitant]
     Dosage: 1 APPLICATION O2
     Route: 055
     Dates: start: 20120125
  28. POLYETHYLENE GLYCOL [Concomitant]
     Route: 048
     Dates: start: 20120203
  29. SULFAMETHOXAZOLE AND TRIMETHOPRIM DOUBLE STRENGTH [Concomitant]
     Dosage: 1 TABLET
     Route: 048
     Dates: start: 20120203
  30. ZOLPIDEM TARTRATE [Concomitant]
     Dosage: 5 MILLIGRAM
     Route: 048
     Dates: start: 20120202
  31. OMEPRAZOLE [Concomitant]
     Dosage: 20 MILLIGRAM
     Route: 048
     Dates: start: 20120126
  32. WARFARIN SODIUM [Concomitant]
     Dosage: 5 MILLIGRAM
     Route: 048
     Dates: start: 20120125
  33. SOLU-MEDROL [Concomitant]
     Dosage: 60 MILLIGRAM
     Route: 041
  34. MAGNESIUM OXIDE [Concomitant]
     Dosage: 400 MILLIGRAM
     Route: 048
     Dates: start: 20120203
  35. FUROSEMIDE [Concomitant]
     Dosage: 40 MILLIGRAM
     Route: 048
     Dates: start: 20120109
  36. PREDNISONE TAB [Concomitant]
     Dosage: 40 MILLIGRAM
     Route: 048
     Dates: start: 20120203
  37. LORAZEPAM [Concomitant]
     Dosage: .5 MILLIGRAM
     Route: 048
     Dates: start: 20120109
  38. AMBIEN [Concomitant]
     Dosage: 3 MILLIGRAM
     Route: 048
     Dates: start: 20120126
  39. COUMADIN [Concomitant]
     Route: 065
  40. REGLAN [Concomitant]
     Dosage: 10 MILLIGRAM
     Route: 041
  41. MICAFUNGIN [Concomitant]
     Route: 065
  42. ANTIFUNGALS [Concomitant]
     Route: 065
  43. CALCIUM CARBONATE [Concomitant]
     Dosage: 1250 MILLIGRAM
     Route: 048
     Dates: start: 20120203
  44. MUCINEX [Concomitant]
     Dosage: 1200 MILLIGRAM
     Route: 048
     Dates: start: 20120126
  45. MULTI-VITAMINS [Concomitant]
     Dosage: 1 TABLET
     Route: 048
     Dates: start: 20120126

REACTIONS (3)
  - CARDIAC ARREST [None]
  - CANDIDIASIS [None]
  - RESPIRATORY FAILURE [None]
